FAERS Safety Report 13978656 (Version 1)
Quarter: 2017Q3

REPORT INFORMATION
  Report Type: Report from Study
  Country: JP (occurrence: JP)
  Receive Date: 20170915
  Receipt Date: 20170915
  Transmission Date: 20171128
  Serious: Yes (Death)
  Sender: FDA-Public Use
  Company Number: JP-TEVA-805102ROM

PATIENT
  Age: 36 Year
  Sex: Female

DRUGS (3)
  1. TRIAZOLAM. [Suspect]
     Active Substance: TRIAZOLAM
     Indication: OVERDOSE
     Route: 048
  2. AMOBARBITAL [Suspect]
     Active Substance: AMOBARBITAL
     Indication: OVERDOSE
     Route: 048
  3. PENTOBARBITAL. [Suspect]
     Active Substance: PENTOBARBITAL
     Indication: OVERDOSE
     Route: 048

REACTIONS (2)
  - Toxicity to various agents [Fatal]
  - Overdose [Fatal]
